FAERS Safety Report 25511191 (Version 1)
Quarter: 2025Q3

REPORT INFORMATION
  Report Type: Spontaneous
  Country: US (occurrence: None)
  Receive Date: 20250703
  Receipt Date: 20250703
  Transmission Date: 20251021
  Serious: Yes (Disabling)
  Sender: FDA-CTU
  Company Number: None

PATIENT
  Age: 76 Year
  Sex: Female
  Weight: 56.7 kg

DRUGS (6)
  1. LEVOFLOXACIN [Suspect]
     Active Substance: LEVOFLOXACIN
     Indication: Pneumonia
     Dosage: FREQUENCY : DAILY;?
     Route: 048
     Dates: start: 20250120, end: 20250123
  2. LEVOTHYROXINE [Concomitant]
     Active Substance: LEVOTHYROXINE
  3. OPZELURA CREAM [Concomitant]
  4. Mesalamine, as needed (not used in 2025) [Concomitant]
  5. IMODIUM AD [Concomitant]
     Active Substance: LOPERAMIDE HYDROCHLORIDE
  6. CALCIUM CITRATE [Concomitant]
     Active Substance: CALCIUM CITRATE

REACTIONS (7)
  - Oral candidiasis [None]
  - Vaginal infection [None]
  - Gastrooesophageal reflux disease [None]
  - Arthralgia [None]
  - Joint instability [None]
  - Crepitations [None]
  - Gait disturbance [None]

NARRATIVE: CASE EVENT DATE: 20250123
